FAERS Safety Report 15925359 (Version 4)
Quarter: 2019Q2

REPORT INFORMATION
  Report Type: Spontaneous
  Country: US (occurrence: US)
  Receive Date: 20190206
  Receipt Date: 20190617
  Transmission Date: 20190711
  Serious: No
  Sender: FDA-Public Use
  Company Number: US-PFIZER INC-2019046216

PATIENT
  Age: 74 Year
  Sex: Female
  Weight: 136 kg

DRUGS (1)
  1. CELEBREX [Suspect]
     Active Substance: CELECOXIB
     Indication: SWELLING
     Dosage: 200 MG, 1X/DAY
     Route: 048

REACTIONS (2)
  - Pain [Unknown]
  - Drug effective for unapproved indication [Unknown]
